APPROVED DRUG PRODUCT: CALCIUM GLUCONATE
Active Ingredient: CALCIUM GLUCONATE
Strength: 10GM/100ML (100MG/ML)
Dosage Form/Route: SOLUTION;INTRAVENOUS
Application: A216611 | Product #003 | TE Code: AP
Applicant: AMNEAL EU LTD
Approved: May 10, 2024 | RLD: No | RS: No | Type: RX